FAERS Safety Report 5732835-7 (Version None)
Quarter: 2008Q2

REPORT INFORMATION
  Report Type: 
  Country: None (occurrence: None)
  Receive Date: 20080507
  Receipt Date: 20080507
  Transmission Date: 20081010
  Serious: Yes (Other)
  Sender: FDA-Public Use
  Company Number: None

PATIENT
  Age: 77 Year
  Sex: Female
  Weight: 73.4827 kg

DRUGS (1)
  1. RECLAST [Suspect]
     Indication: OSTEOPOROSIS
     Dosage: IV DRIP
     Route: 042
     Dates: start: 20080502, end: 20080502

REACTIONS (9)
  - BACK PAIN [None]
  - BONE PAIN [None]
  - CHEST PAIN [None]
  - CHILLS [None]
  - DRUG INEFFECTIVE [None]
  - INFLUENZA [None]
  - PAIN [None]
  - PYREXIA [None]
  - TREMOR [None]
